FAERS Safety Report 4389669-8 (Version None)
Quarter: 2004Q2

REPORT INFORMATION
  Report Type: 
  Country: None (occurrence: None)
  Receive Date: 20040629
  Receipt Date: 20040130
  Transmission Date: 20050107
  Serious: Yes (Hospitalization)
  Sender: FDA-Public Use
  Company Number: US-JNJFOC-20031101345

PATIENT
  Age: 78 Year
  Sex: Female
  Weight: 82.5547 kg

DRUGS (19)
  1. DURAGESIC [Suspect]
     Indication: PAIN
     Dosage: 75 UG/HR, 1 IN 72 HOUR, TRANSDERMAL; SEE IMAGE
     Route: 062
     Dates: start: 20031001, end: 20031106
  2. DURAGESIC [Suspect]
     Indication: PAIN
     Dosage: 75 UG/HR, 1 IN 72 HOUR, TRANSDERMAL; SEE IMAGE
     Route: 062
     Dates: start: 20031202, end: 20031206
  3. SYNTHROID [Concomitant]
  4. CELEBREX [Concomitant]
  5. ZOLOFT [Concomitant]
  6. NEXIUM [Concomitant]
  7. NORVASC [Concomitant]
  8. MAXIDE (DYAZIDE) [Concomitant]
  9. LORAZEPAM [Concomitant]
  10. TOPROL (METOPROLOL SUCCINATE) [Concomitant]
  11. EVISTA [Concomitant]
  12. MECLIZINE [Concomitant]
  13. PREDNISONE TAB [Concomitant]
  14. SEROQUEL [Concomitant]
  15. K-DUR 10 [Concomitant]
  16. CALCIUM (CALCIUM) [Concomitant]
  17. CITRACEL (CALCIUM CITRATE) [Concomitant]
  18. ATACARD (CANDESARTAN CILEXETIL) [Concomitant]
  19. IMDUR [Concomitant]

REACTIONS (5)
  - CONFUSIONAL STATE [None]
  - DEPERSONALISATION [None]
  - HALLUCINATION [None]
  - HYPERSOMNIA [None]
  - SEDATION [None]
